FAERS Safety Report 25150223 (Version 2)
Quarter: 2025Q2

REPORT INFORMATION
  Report Type: Spontaneous
  Country: IT (occurrence: IT)
  Receive Date: 20250402
  Receipt Date: 20250429
  Transmission Date: 20250717
  Serious: Yes (Other)
  Sender: PFIZER
  Company Number: IT-PFIZER INC-PV202500037968

PATIENT
  Age: 62 Year
  Sex: Female

DRUGS (5)
  1. FLUCONAZOLE [Interacting]
     Active Substance: FLUCONAZOLE
     Dosage: 50 MG, 2X/DAY
  2. VERAPAMIL [Interacting]
     Active Substance: VERAPAMIL HYDROCHLORIDE
  3. HYDROCHLOROTHIAZIDE\RAMIPRIL [Concomitant]
     Active Substance: HYDROCHLOROTHIAZIDE\RAMIPRIL
  4. ROSUVASTATIN [Concomitant]
     Active Substance: ROSUVASTATIN
  5. ROSUVASTATIN [Concomitant]
     Active Substance: ROSUVASTATIN

REACTIONS (5)
  - Drug interaction [Recovered/Resolved]
  - Alkalosis hypokalaemic [Recovered/Resolved]
  - Rhabdomyolysis [Recovered/Resolved]
  - Electrolyte imbalance [Recovered/Resolved]
  - Off label use [Unknown]
